FAERS Safety Report 9558937 (Version 1)
Quarter: 2013Q3

REPORT INFORMATION
  Report Type: Spontaneous
  Country: US (occurrence: US)
  Receive Date: 20130927
  Receipt Date: 20130927
  Transmission Date: 20140515
  Serious: Yes (Death)
  Sender: FDA-Public Use
  Company Number: US-PAR PHARMACEUTICAL, INC-2013SCPR007671

PATIENT
  Sex: 0

DRUGS (3)
  1. ALPRAZOLAM [Suspect]
     Indication: PRODUCT USED FOR UNKNOWN INDICATION
     Dosage: 3 MG, UNKNOWN
  2. METHADONE [Suspect]
     Indication: PRODUCT USED FOR UNKNOWN INDICATION
     Dosage: 40 MG, UNKNOWN
     Route: 048
  3. CANNABINOIDS [Suspect]
     Indication: PRODUCT USED FOR UNKNOWN INDICATION
     Dosage: UNK, UNKNOWN
     Route: 065

REACTIONS (9)
  - Toxicity to various agents [Fatal]
  - Death [Fatal]
  - Drug abuse [Fatal]
  - Drug interaction [Fatal]
  - Brain injury [Fatal]
  - Pulmonary oedema [Fatal]
  - Rhabdomyolysis [Fatal]
  - Multi-organ failure [Fatal]
  - Renal failure acute [Fatal]
